FAERS Safety Report 7828581 (Version 4)
Quarter: 2014Q1

REPORT INFORMATION
  Report Type: Spontaneous
  Country: US (occurrence: US)
  Receive Date: 20110225
  Receipt Date: 20140211
  Transmission Date: 20141002
  Serious: Yes (Hospitalization, Other)
  Sender: FDA-Public Use
  Company Number: US-ROCHE-738873

PATIENT
  Age: 35 Year
  Sex: Male
  Weight: 81.6 kg

DRUGS (3)
  1. ACCUTANE [Suspect]
     Indication: ACNE
     Route: 065
     Dates: start: 1990, end: 19920101
  2. ACCUTANE [Suspect]
     Route: 065
     Dates: start: 19930615, end: 199309
  3. ACCUTANE [Suspect]
     Route: 065
     Dates: start: 1997, end: 1999

REACTIONS (11)
  - Anal fistula [Unknown]
  - Crohn^s disease [Unknown]
  - Colitis [Unknown]
  - Gastrointestinal injury [Unknown]
  - Inflammatory bowel disease [Unknown]
  - Intestinal obstruction [Unknown]
  - Anal abscess [Unknown]
  - Anal fissure [Unknown]
  - Depression [Unknown]
  - Dry skin [Unknown]
  - Road traffic accident [Unknown]
